FAERS Safety Report 8202288-8 (Version None)
Quarter: 2012Q1

REPORT INFORMATION
  Report Type: 
  Country: None (occurrence: None)
  Receive Date: 20120312
  Receipt Date: 20120301
  Transmission Date: 20120608
  Serious: Yes (Hospitalization, Other)
  Sender: FDA-Public Use
  Company Number: US-ELI_LILLY_AND_COMPANY-US201201006804

PATIENT
  Sex: Male

DRUGS (13)
  1. DIGOXIN [Concomitant]
     Dosage: UNK
  2. WARFARIN SODIUM [Concomitant]
     Dosage: UNK
  3. HUMALOG [Suspect]
     Indication: TYPE 2 DIABETES MELLITUS
     Dosage: UNK, UNKNOWN
     Route: 065
  4. HUMULIN R [Suspect]
     Indication: TYPE 2 DIABETES MELLITUS
     Dosage: 30 U, UNKNOWN
     Route: 065
  5. PROVIGIL [Concomitant]
     Indication: NARCOLEPSY
     Dosage: UNK
  6. METFORMIN HCL [Concomitant]
     Dosage: UNK
  7. ZAROXOLYN [Concomitant]
     Dosage: UNK
  8. GABAPENTIN [Concomitant]
     Indication: NEUROPATHY PERIPHERAL
     Dosage: UNK
  9. LANTUS [Concomitant]
     Dosage: 36 U, EACH MORNING
  10. OTHER ANTIHYPERTENSIVES [Concomitant]
     Dosage: UNK
  11. FUROSEMIDE [Concomitant]
     Dosage: UNK
  12. LOVAZA [Concomitant]
     Dosage: UNK
  13. POTASSIUM [Concomitant]
     Dosage: UNK

REACTIONS (18)
  - PERICARDIAL EFFUSION [None]
  - WEIGHT DECREASED [None]
  - HIGH FREQUENCY ABLATION [None]
  - ANGINA PECTORIS [None]
  - HEART RATE INCREASED [None]
  - MALAISE [None]
  - NARCOLEPSY [None]
  - PULMONARY OEDEMA [None]
  - CHEST PAIN [None]
  - CARDIAC MURMUR [None]
  - DIABETES MELLITUS INADEQUATE CONTROL [None]
  - HEART RATE IRREGULAR [None]
  - ASTHENIA [None]
  - DYSPNOEA [None]
  - AORTIC VALVE DISEASE [None]
  - ARRHYTHMIA [None]
  - MEMORY IMPAIRMENT [None]
  - INTRACARDIAC THROMBUS [None]
